FAERS Safety Report 5614147-5 (Version None)
Quarter: 2008Q1

REPORT INFORMATION
  Report Type: 
  Country: None (occurrence: None)
  Receive Date: 20080205
  Receipt Date: 20080128
  Transmission Date: 20080703
  Serious: Yes (Other)
  Sender: FDA-Public Use
  Company Number: A0660790A

PATIENT
  Sex: Male

DRUGS (2)
  1. ADVAIR DISKUS 100/50 [Suspect]
     Indication: WHEEZING
     Dosage: 1PUFF PER DAY
     Route: 055
     Dates: start: 20070601, end: 20071001
  2. SIMVASTATIN [Concomitant]

REACTIONS (3)
  - COUGH [None]
  - EYE HAEMORRHAGE [None]
  - PHOTOPSIA [None]
